FAERS Safety Report 8458479-4 (Version None)
Quarter: 2012Q2

REPORT INFORMATION
  Report Type: 
  Country: None (occurrence: None)
  Receive Date: 20120615
  Receipt Date: 20120531
  Transmission Date: 20120825
  Serious: Yes (Hospitalization, Other)
  Sender: FDA-Public Use
  Company Number: 2012-001832

PATIENT
  Age: 79 Year
  Sex: Female

DRUGS (1)
  1. RISEDRONATE SODIUM [Suspect]
     Indication: OSTEOPOROSIS
     Dosage: 2.5 MG DAILY, ORAL
     Route: 048

REACTIONS (9)
  - BLOOD ALBUMIN DECREASED [None]
  - EXOSTOSIS [None]
  - DYSSTASIA [None]
  - PAIN [None]
  - FALL [None]
  - BLOOD CREATINE PHOSPHOKINASE INCREASED [None]
  - WHITE BLOOD CELL COUNT DECREASED [None]
  - ATYPICAL FEMUR FRACTURE [None]
  - HAEMOGLOBIN DECREASED [None]
